FAERS Safety Report 4762172-9 (Version None)
Quarter: 2005Q3

REPORT INFORMATION
  Report Type: 
  Country: None (occurrence: None)
  Receive Date: 20050906
  Receipt Date: 20050906
  Transmission Date: 20060218
  Serious: Yes (Hospitalization)
  Sender: FDA-Public Use
  Company Number: None

PATIENT
  Age: 37 Year
  Sex: Male
  Weight: 53 kg

DRUGS (3)
  1. PROGRAF [Suspect]
     Indication: PROPHYLAXIS AGAINST TRANSPLANT REJECTION
     Dosage: BID   IV
     Route: 042
     Dates: start: 20050421, end: 20050427
  2. PROGRAF [Suspect]
     Indication: PROPHYLAXIS AGAINST TRANSPLANT REJECTION
     Dosage: BID   IV
     Route: 042
     Dates: start: 20050430
  3. PROGRAF [Suspect]
     Dosage: BID  IV
     Route: 042
     Dates: start: 20050428, end: 20050503

REACTIONS (2)
  - APHASIA [None]
  - DYSPHAGIA [None]
